FAERS Safety Report 5412947-8 (Version None)
Quarter: 2007Q3

REPORT INFORMATION
  Report Type: 
  Country: None (occurrence: None)
  Receive Date: 20070813
  Receipt Date: 20070808
  Transmission Date: 20080115
  Serious: Yes (Other)
  Sender: FDA-Public Use
  Company Number: US-MERCK-0708USA01593

PATIENT
  Age: 34 Year
  Sex: Male

DRUGS (2)
  1. SINGULAIR [Suspect]
     Indication: COUGH
     Route: 048
     Dates: start: 20050101, end: 20070807
  2. RISPERDAL [Concomitant]
     Route: 065

REACTIONS (1)
  - AUTISM [None]
